FAERS Safety Report 5372549-9 (Version None)
Quarter: 2007Q2

REPORT INFORMATION
  Report Type: 
  Country: None (occurrence: None)
  Receive Date: 20070626
  Receipt Date: 20070611
  Transmission Date: 20071010
  Serious: Yes (Hospitalization, Other)
  Sender: FDA-Public Use
  Company Number: 2007RR-08052

PATIENT
  Age: 69 Year
  Sex: Female

DRUGS (1)
  1. ENALAPRIL MALEATE [Suspect]
     Dosage: 20 MG, QD

REACTIONS (2)
  - DYSPNOEA [None]
  - INAPPROPRIATE ANTIDIURETIC HORMONE SECRETION [None]
